FAERS Safety Report 7300873-9 (Version None)
Quarter: 2011Q1

REPORT INFORMATION
  Report Type: 
  Country: None (occurrence: None)
  Receive Date: 20110218
  Receipt Date: 20110208
  Transmission Date: 20110831
  Serious: Yes (Other)
  Sender: FDA-Public Use
  Company Number: PHHY2011HU11399

PATIENT
  Age: 53 Year
  Sex: Female

DRUGS (9)
  1. TRITACE [Concomitant]
  2. ZOCOR [Concomitant]
  3. ACLASTA [Suspect]
     Indication: OSTEOPOROSIS
     Dosage: 5 MG
  4. AMILORID COMP [Concomitant]
  5. FAMOTIDINE [Concomitant]
  6. FRONTIN [Concomitant]
  7. METFORMIN [Concomitant]
  8. NOOTROPIL [Concomitant]
  9. DICLOFENAC [Concomitant]

REACTIONS (8)
  - STUPOR [None]
  - BRADYCARDIA [None]
  - HYPOTENSION [None]
  - HEADACHE [None]
  - ARTHRITIS [None]
  - CHILLS [None]
  - PYREXIA [None]
  - ARTHRALGIA [None]
